FAERS Safety Report 18834843 (Version 9)
Quarter: 2022Q1

REPORT INFORMATION
  Report Type: Report from Study
  Country: CA (occurrence: CA)
  Receive Date: 20210203
  Receipt Date: 20220304
  Transmission Date: 20220424
  Serious: Yes (Hospitalization)
  Sender: FDA-Public Use
  Company Number: PHHY2017CA077305

PATIENT
  Age: 43 Year
  Sex: Male

DRUGS (14)
  1. COSENTYX [Suspect]
     Active Substance: SECUKINUMAB
     Indication: Ankylosing spondylitis
     Dosage: 450 MG (FREQUENCY: 300MG WEEK 1 THEN 150MG WEEK 3)
     Route: 058
     Dates: start: 20170512, end: 20170602
  2. COSENTYX [Suspect]
     Active Substance: SECUKINUMAB
     Dosage: 150 MG, QMO
     Route: 058
     Dates: start: 20170609
  3. COSENTYX [Suspect]
     Active Substance: SECUKINUMAB
     Dosage: 150 MG, QMO
     Route: 058
     Dates: start: 20170909
  4. COSENTYX [Suspect]
     Active Substance: SECUKINUMAB
     Dosage: 150 MG, Q2W (SENSOREADY PEN)
     Route: 058
     Dates: start: 20190609
  5. COSENTYX [Suspect]
     Active Substance: SECUKINUMAB
     Dosage: 150 MG, Q2W (SENSOREADY PEN)
     Route: 058
     Dates: start: 20170512
  6. COSENTYX [Suspect]
     Active Substance: SECUKINUMAB
     Dosage: 150 MG (EVERY 10 DAYS)
     Route: 065
  7. COSENTYX [Suspect]
     Active Substance: SECUKINUMAB
     Dosage: 450 MG (300MG WEEK1 THEN 150MG WEEK 3)
     Route: 058
     Dates: start: 20201218
  8. COSENTYX [Suspect]
     Active Substance: SECUKINUMAB
     Dosage: 450 MG (FREQUENCY: 300MG WEEK 1 THEN 150 MG WEEK 3)
     Route: 058
  9. COSENTYX [Suspect]
     Active Substance: SECUKINUMAB
     Dosage: 300 MG
     Route: 065
     Dates: start: 20211008
  10. COSENTYX [Suspect]
     Active Substance: SECUKINUMAB
     Dosage: 450 MG, (FREQUENCY: 300MG WEEK 1 THEN 150 MG WEEK 3)
     Route: 058
  11. HUMIRA [Concomitant]
     Active Substance: ADALIMUMAB
     Indication: Product used for unknown indication
     Dosage: UNK
     Route: 065
  12. CORTISONE [Concomitant]
     Active Substance: CORTISONE
     Indication: Product used for unknown indication
     Dosage: UNK
     Route: 065
  13. PIROCAM [Concomitant]
     Indication: Product used for unknown indication
     Dosage: UNK
     Route: 065
  14. DILAUDID [Concomitant]
     Active Substance: HYDROMORPHONE HYDROCHLORIDE
     Indication: Costochondritis
     Dosage: (IN MODERATE)
     Route: 065

REACTIONS (29)
  - Pancreatitis [Unknown]
  - Enteritis infectious [Unknown]
  - Traumatic haemothorax [Recovering/Resolving]
  - Depression [Unknown]
  - Pneumonia [Unknown]
  - Malaise [Unknown]
  - Confusional state [Not Recovered/Not Resolved]
  - Dizziness [Not Recovered/Not Resolved]
  - Dysarthria [Unknown]
  - Headache [Unknown]
  - Feeling abnormal [Unknown]
  - Condition aggravated [Unknown]
  - Discomfort [Unknown]
  - Ligament sprain [Unknown]
  - Fibromyalgia [Unknown]
  - Fall [Unknown]
  - Somnolence [Unknown]
  - Nausea [Unknown]
  - Rib fracture [Unknown]
  - Movement disorder [Unknown]
  - Musculoskeletal stiffness [Unknown]
  - Fatigue [Unknown]
  - Neck pain [Not Recovered/Not Resolved]
  - Back pain [Not Recovered/Not Resolved]
  - Arthralgia [Unknown]
  - Joint swelling [Unknown]
  - Pain [Unknown]
  - Inappropriate schedule of product administration [Unknown]
  - Drug ineffective [Unknown]

NARRATIVE: CASE EVENT DATE: 20170501
